FAERS Safety Report 6081329-0 (Version None)
Quarter: 2009Q1

REPORT INFORMATION
  Report Type: 
  Country: None (occurrence: None)
  Receive Date: 20090212
  Receipt Date: 20090203
  Transmission Date: 20090719
  Serious: Yes (Death)
  Sender: FDA-Public Use
  Company Number: THYM-1000900

PATIENT
  Age: 39 Year
  Sex: Male
  Weight: 64 kg

DRUGS (2)
  1. THYMOGLOBULIN [Suspect]
     Indication: DRUG USE FOR UNKNOWN INDICATION
     Dosage: 1.2 MG/KG, ONCE, INTRAVENOUS : 1.2 MG/KG, ONCE, INTRAVENOUS
     Route: 042
     Dates: start: 20081224, end: 20081224
  2. THYMOGLOBULIN [Suspect]
     Indication: DRUG USE FOR UNKNOWN INDICATION
     Dosage: 1.2 MG/KG, ONCE, INTRAVENOUS : 1.2 MG/KG, ONCE, INTRAVENOUS
     Route: 042
     Dates: start: 20081227, end: 20081227

REACTIONS (2)
  - RENAL FAILURE [None]
  - THROMBOTIC MICROANGIOPATHY [None]
